FAERS Safety Report 7936621-9 (Version None)
Quarter: 2011Q4

REPORT INFORMATION
  Report Type: 
  Country: None (occurrence: None)
  Receive Date: 20111121
  Receipt Date: 20110817
  Transmission Date: 20120403
  Serious: No
  Sender: FDA-Public Use
  Company Number: 2011029560

PATIENT
  Age: 46 Year
  Sex: Female

DRUGS (1)
  1. BERINERT [Suspect]
     Dosage: (INTRAVENOUS (NOT OTHERWISE SPECIFIED))
     Route: 042
     Dates: start: 20110816, end: 20110816

REACTIONS (3)
  - PAROSMIA [None]
  - NAUSEA [None]
  - DECREASED APPETITE [None]
